FAERS Safety Report 6129369-7 (Version None)
Quarter: 2009Q1

REPORT INFORMATION
  Report Type: 
  Country: None (occurrence: None)
  Receive Date: 20090324
  Receipt Date: 20090317
  Transmission Date: 20090719
  Serious: Yes (Other)
  Sender: FDA-Public Use
  Company Number: PHEH2009US02686

PATIENT
  Sex: Female

DRUGS (1)
  1. ZOMETA [Suspect]
     Indication: FIBROUS DYSPLASIA OF BONE
     Dosage: 4 MG, QMO
     Dates: start: 20081007

REACTIONS (3)
  - BONE DISORDER [None]
  - TOOTH EXTRACTION [None]
  - TOOTHACHE [None]
